FAERS Safety Report 4286275-0 (Version None)
Quarter: 2004Q1

REPORT INFORMATION
  Report Type: 
  Country: None (occurrence: None)
  Receive Date: 20040115
  Receipt Date: 20030123
  Transmission Date: 20041129
  Serious: Yes (Death)
  Sender: FDA-Public Use
  Company Number: NSADSS2002041950

PATIENT
  Age: 79 Year
  Sex: Female
  Weight: 66.6788 kg

DRUGS (4)
  1. DOXIL [Suspect]
     Indication: CERVIX CARCINOMA
     Dosage: 60 MG, 1 IN 1 MONTH, INTRAVENOUS DRIP
     Route: 041
     Dates: start: 20020911, end: 20020911
  2. ATIVAN [Concomitant]
  3. COMPAZINE (TABLETS) PROCHLORPERAZINE EDISYLATE [Concomitant]
  4. COMPAZINE (PROCHLORPERAZINE EDISYLATE) SUPPOSITORY [Concomitant]

REACTIONS (3)
  - CONDITION AGGRAVATED [None]
  - PAIN [None]
  - PNEUMONIA [None]
